FAERS Safety Report 17924889 (Version 1)
Quarter: 2020Q2

REPORT INFORMATION
  Report Type: Report from Study
  Country: US (occurrence: US)
  Receive Date: 20200622
  Receipt Date: 20200622
  Transmission Date: 20200714
  Serious: Yes (Hospitalization)
  Sender: FDA-Public Use
  Company Number: US-ROCHE-2626588

PATIENT
  Age: 62 Year
  Sex: Male
  Weight: 83.8 kg

DRUGS (2)
  1. ATEZOLIZUMAB. [Suspect]
     Active Substance: ATEZOLIZUMAB
     Indication: HORMONE-REFRACTORY PROSTATE CANCER
     Dosage: THE DATE OF THE MOST RECENT DOSE OF ATEZOLIZUMAB PRIOR TO THE EVENT WAS NOT PROVIDED.
     Route: 042
  2. CABOZANTINIB [Suspect]
     Active Substance: CABOZANTINIB
     Indication: HORMONE-REFRACTORY PROSTATE CANCER
     Dosage: THE DATE OF THE MOST RECENT DOSE OF CABOZANTINIB AND ATEZOLIZUMAB PRIOR TO THE EVENT WAS NOT PROVIDE
     Route: 065

REACTIONS (1)
  - Failure to thrive [Not Recovered/Not Resolved]

NARRATIVE: CASE EVENT DATE: 20200610
